FAERS Safety Report 5749506-3 (Version None)
Quarter: 2008Q2

REPORT INFORMATION
  Report Type: 
  Country: None (occurrence: None)
  Receive Date: 20080527
  Receipt Date: 20080519
  Transmission Date: 20081010
  Serious: Yes (Hospitalization)
  Sender: FDA-Public Use
  Company Number: B0521131A

PATIENT
  Age: 3 Year
  Sex: Female

DRUGS (2)
  1. AUGMENTIN '125' [Suspect]
     Route: 048
     Dates: start: 20080219, end: 20080227
  2. CELESTONE [Concomitant]
     Route: 065
     Dates: start: 20080219

REACTIONS (5)
  - ERYTHEMA [None]
  - GENITAL SWELLING [None]
  - LIP OEDEMA [None]
  - PRURITUS [None]
  - RASH MACULO-PAPULAR [None]
